FAERS Safety Report 13273709 (Version 2)
Quarter: 2017Q2

REPORT INFORMATION
  Report Type: Report from Study
  Country: JP (occurrence: JP)
  Receive Date: 20170227
  Receipt Date: 20170628
  Transmission Date: 20170830
  Serious: Yes (Other)
  Sender: FDA-Public Use
  Company Number: JP-PFIZER INC-2017079460

PATIENT
  Age: 62 Year
  Sex: Male

DRUGS (3)
  1. SODIUM THIOSULFATE [Concomitant]
     Active Substance: SODIUM THIOSULFATE
     Dosage: 1000 MG/M2, UNK
     Route: 042
  2. CISPLATIN. [Suspect]
     Active Substance: CISPLATIN
     Indication: GINGIVAL CANCER
     Dosage: 5 MG/M2/DAY X 5, CYCLIC
     Route: 013
  3. DOCETAXEL. [Suspect]
     Active Substance: DOCETAXEL
     Indication: GINGIVAL CANCER
     Dosage: 10 MG/M2/WEEK X 1,CYCLIC
     Route: 013

REACTIONS (2)
  - Facial paralysis [Recovered/Resolved]
  - Trigeminal nerve paresis [Recovered/Resolved]
